FAERS Safety Report 13666759 (Version 1)
Quarter: 2017Q2

REPORT INFORMATION
  Report Type: Spontaneous
  Country: US (occurrence: US)
  Receive Date: 20170619
  Receipt Date: 20170619
  Transmission Date: 20170830
  Serious: No
  Sender: FDA-Public Use
  Company Number: US-ROCHE-1051605

PATIENT
  Sex: Female

DRUGS (1)
  1. XELODA [Suspect]
     Active Substance: CAPECITABINE
     Indication: COLON CANCER
     Dosage: 3 TABLETS IN MORNING AND 2 TABLETS IN EVENING
     Route: 048

REACTIONS (3)
  - Fatigue [Unknown]
  - Dehydration [Unknown]
  - Constipation [Unknown]
